FAERS Safety Report 7098236-7 (Version None)
Quarter: 2010Q4

REPORT INFORMATION
  Report Type: 
  Country: None (occurrence: None)
  Receive Date: 20101104
  Receipt Date: 20101027
  Transmission Date: 20110411
  Serious: Yes (Death, Other)
  Sender: FDA-Public Use
  Company Number: 201010AGG00959

PATIENT
  Sex: Female

DRUGS (3)
  1. ANGIOMAX [Suspect]
     Indication: ACUTE MYOCARDIAL INFARCTION
     Dosage: 114.4 MG INTRAVENOUS
     Route: 042
     Dates: start: 20100924, end: 20100924
  2. TIROFIBAN HYDROCHLORIDE (AGGRASTAT TIROFIBAN HYDROCHLORIDE) [Suspect]
     Indication: ACUTE MYOCARDIAL INFARCTION
     Dosage: 191 MG INTRAVENOUS
     Route: 042
     Dates: start: 20100924, end: 20100924
  3. FLECTADOL /00002703/ (FLECTADOL ACETYLSALICYLATE LYSINE) [Suspect]
     Indication: ACUTE MYOCARDIAL INFARCTION
     Dosage: 300 MG INTRAVENOUS
     Route: 042
     Dates: start: 20100924, end: 20100924

REACTIONS (2)
  - RESPIRATORY TRACT HAEMORRHAGE [None]
  - SHOCK [None]
